FAERS Safety Report 4319025-X (Version None)
Quarter: 2004Q1

REPORT INFORMATION
  Report Type: 
  Country: None (occurrence: None)
  Receive Date: 20040316
  Receipt Date: 20040302
  Transmission Date: 20041129
  Serious: Yes (Death, Other)
  Sender: FDA-Public Use
  Company Number: 2003-BP-05142PF

PATIENT
  Age: 87 Year
  Sex: Female

DRUGS (6)
  1. SPIRIVA [Suspect]
     Dosage: 18 MCG (18 MCG) IH
     Route: 055
  2. LASIX [Concomitant]
  3. DIOVAN [Concomitant]
  4. RIMNON [Concomitant]
  5. ACTONEAL (RISEDRONATE SODIUM) [Concomitant]
  6. ASPIRIN [Concomitant]

REACTIONS (2)
  - CARDIAC ARREST [None]
  - SUDDEN DEATH [None]
